FAERS Safety Report 8613438-3 (Version None)
Quarter: 2012Q3

REPORT INFORMATION
  Report Type: 
  Country: None (occurrence: None)
  Receive Date: 20120822
  Receipt Date: 20120812
  Transmission Date: 20120928
  Serious: Yes (Other)
  Sender: FDA-Public Use
  Company Number: AT-BRISTOL-MYERS SQUIBB COMPANY-16851305

PATIENT
  Sex: Female
  Weight: 68 kg

DRUGS (1)
  1. ABILIFY [Suspect]

REACTIONS (3)
  - SKIN REACTION [None]
  - WEIGHT INCREASED [None]
  - SYNCOPE [None]
